FAERS Safety Report 20475039 (Version 2)
Quarter: 2022Q1

REPORT INFORMATION
  Report Type: Spontaneous
  Country: US (occurrence: US)
  Receive Date: 20220215
  Receipt Date: 20220308
  Transmission Date: 20220423
  Serious: Yes (Other)
  Sender: FDA-Public Use
  Company Number: US-CELGENE-USA-20220203270

PATIENT
  Sex: Male

DRUGS (3)
  1. POMALYST [Suspect]
     Active Substance: POMALIDOMIDE
     Indication: Plasma cell myeloma
     Dosage: 2 MILLIGRAM
     Route: 048
     Dates: start: 20210405
  2. POMALYST [Suspect]
     Active Substance: POMALIDOMIDE
     Indication: Thyroiditis
  3. POMALYST [Suspect]
     Active Substance: POMALIDOMIDE
     Indication: Off label use

REACTIONS (1)
  - Arthritis infective [Not Recovered/Not Resolved]
